FAERS Safety Report 7756499-6 (Version None)
Quarter: 2011Q3

REPORT INFORMATION
  Report Type: 
  Country: None (occurrence: None)
  Receive Date: 20110916
  Receipt Date: 20110916
  Transmission Date: 20111222
  Serious: Yes (Hospitalization)
  Sender: FDA-Public Use
  Company Number: IT-SANOFI-AVENTIS-2011SA060208

PATIENT
  Sex: Male

DRUGS (3)
  1. MULTAQ [Suspect]
     Route: 048
     Dates: start: 20101005
  2. COUMADIN [Concomitant]
     Dates: end: 20110801
  3. HEPARIN CALCIUM [Concomitant]
     Dates: start: 20110801

REACTIONS (4)
  - VENOUS THROMBOSIS [None]
  - HYPERTENSION [None]
  - CEREBRAL HAEMATOMA [None]
  - HEADACHE [None]
